FAERS Safety Report 21658526 (Version 5)
Quarter: 2023Q1

REPORT INFORMATION
  Report Type: Spontaneous
  Country: US (occurrence: US)
  Receive Date: 20221129
  Receipt Date: 20230316
  Transmission Date: 20230418
  Serious: No
  Sender: FDA-Public Use
  Company Number: US-BRISTOL-MYERS SQUIBB COMPANY-2022-143069

PATIENT
  Age: 72 Year
  Sex: Male

DRUGS (2)
  1. POMALYST [Suspect]
     Active Substance: POMALIDOMIDE
     Indication: Plasma cell myeloma
     Dosage: TAKE 1 CAPSULE WHOLE BY MOUTH WITH WATER, W/ OR W/O FOOD, AT AROUND SAME TIME DAILY FOR 21 DAYS AND
     Route: 048
     Dates: start: 20221123
  2. POMALYST [Suspect]
     Active Substance: POMALIDOMIDE
     Dosage: FREQ -TAKE 1 WHOLE CAPSULE BY MOUTH
     Route: 048

REACTIONS (8)
  - Musculoskeletal stiffness [Unknown]
  - Pain [Unknown]
  - Initial insomnia [Unknown]
  - Affective disorder [Unknown]
  - Hypoaesthesia [Unknown]
  - Nausea [Unknown]
  - Fatigue [Unknown]
  - Oedema peripheral [Unknown]
